FAERS Safety Report 8090400-3 (Version None)
Quarter: 2012Q1

REPORT INFORMATION
  Report Type: 
  Country: None (occurrence: None)
  Receive Date: 20120129
  Receipt Date: 20111201
  Transmission Date: 20120608
  Serious: No
  Sender: FDA-Public Use
  Company Number: US-ABBOTT-11P-163-0879736-00

PATIENT
  Age: 21 Year
  Sex: Female

DRUGS (2)
  1. HUMIRA [Suspect]
     Indication: COLITIS ULCERATIVE
  2. HUMIRA [Suspect]
     Indication: OFF LABEL USE

REACTIONS (5)
  - OFF LABEL USE [None]
  - MALAISE [None]
  - DRUG DISPENSING ERROR [None]
  - ANAEMIA [None]
  - INCORRECT DOSE ADMINISTERED [None]
